FAERS Safety Report 7738243-1 (Version None)
Quarter: 2011Q3

REPORT INFORMATION
  Report Type: 
  Country: None (occurrence: None)
  Receive Date: 20110908
  Receipt Date: 20110902
  Transmission Date: 20111222
  Serious: Yes (Hospitalization, Other)
  Sender: FDA-Public Use
  Company Number: CA-ABBOTT-11P-028-0845861-00

PATIENT
  Sex: Female
  Weight: 63.56 kg

DRUGS (8)
  1. HUMIRA [Suspect]
     Indication: CROHN'S DISEASE
     Dosage: ONCE-FIRST INDUCTION DOSE
     Route: 058
     Dates: start: 20110417, end: 20110417
  2. MESALAMINE [Concomitant]
     Indication: COLITIS ULCERATIVE
  3. HUMIRA [Suspect]
     Dosage: ONCE-SECOND INDUCTION DOSE
     Route: 058
     Dates: start: 20110501, end: 20110501
  4. SYNTHROID [Concomitant]
     Indication: HYPOTHYROIDISM
  5. MESALAMINE [Concomitant]
     Indication: CROHN'S DISEASE
     Route: 054
     Dates: start: 20100101, end: 20110501
  6. VANCOMYCIN [Concomitant]
     Indication: CROHN'S DISEASE
     Route: 048
     Dates: start: 20100101, end: 20110718
  7. HUMIRA [Suspect]
     Route: 058
     Dates: start: 20110515, end: 20110601
  8. VANCOMYCIN [Concomitant]
     Indication: COLITIS ULCERATIVE

REACTIONS (4)
  - DRUG INEFFECTIVE [None]
  - PYREXIA [None]
  - FATIGUE [None]
  - COLECTOMY TOTAL [None]
